FAERS Safety Report 7445384-5 (Version None)
Quarter: 2011Q2

REPORT INFORMATION
  Report Type: 
  Country: None (occurrence: None)
  Receive Date: 20110420
  Receipt Date: 20110406
  Transmission Date: 20111010
  Serious: Yes (Other)
  Sender: FDA-Public Use
  Company Number: 1000020070

PATIENT
  Age: 68 Year
  Sex: Male

DRUGS (1)
  1. MEMANTINE HCL [Suspect]
     Dosage: (20 MG),ORAL
     Route: 048

REACTIONS (4)
  - EXTRAPYRAMIDAL DISORDER [None]
  - MUSCULAR WEAKNESS [None]
  - MUSCULOSKELETAL STIFFNESS [None]
  - PETIT MAL EPILEPSY [None]
